FAERS Safety Report 7770090-7 (Version None)
Quarter: 2011Q3

REPORT INFORMATION
  Report Type: 
  Country: None (occurrence: None)
  Receive Date: 20110922
  Receipt Date: 20110915
  Transmission Date: 20111222
  Serious: Yes (Hospitalization)
  Sender: FDA-Public Use
  Company Number: JP-ROCHE-803849

PATIENT
  Sex: Female

DRUGS (39)
  1. TOCILIZUMAB [Suspect]
     Indication: RHEUMATOID ARTHRITIS
     Route: 041
     Dates: start: 20080918, end: 20080918
  2. TOCILIZUMAB [Suspect]
     Route: 041
     Dates: start: 20090303, end: 20090303
  3. TOCILIZUMAB [Suspect]
     Route: 041
     Dates: start: 20090501, end: 20090501
  4. TOCILIZUMAB [Suspect]
     Route: 041
     Dates: start: 20090526, end: 20090526
  5. PREDNISOLONE [Suspect]
     Indication: RHEUMATOID ARTHRITIS
     Route: 048
     Dates: end: 20080801
  6. PREDNISOLONE [Concomitant]
     Route: 048
     Dates: end: 20080801
  7. PREDNISOLONE [Concomitant]
     Route: 048
     Dates: start: 20081113, end: 20090105
  8. PREDNISOLONE [Concomitant]
     Route: 048
     Dates: start: 20090701, end: 20100101
  9. TOCILIZUMAB [Suspect]
     Route: 041
     Dates: start: 20081113, end: 20081113
  10. PREDNISOLONE [Suspect]
     Route: 048
     Dates: start: 20090106, end: 20090302
  11. PREDNISOLONE [Suspect]
     Route: 048
     Dates: start: 20100101, end: 20100301
  12. PREDNISOLONE [Concomitant]
     Route: 048
     Dates: start: 20080802, end: 20080915
  13. SELBEX [Concomitant]
     Dosage: DOSE FORM: PERORAL AGENT
     Route: 048
  14. PREDNISOLONE [Suspect]
     Route: 048
     Dates: start: 20080916, end: 20081112
  15. PREDNISOLONE [Suspect]
     Route: 048
     Dates: start: 20090303, end: 20090101
  16. PREDNISOLONE [Suspect]
     Route: 048
     Dates: start: 20100301
  17. METHOTREXATE [Suspect]
     Route: 048
  18. PREDNISOLONE [Concomitant]
     Route: 048
     Dates: start: 20100101, end: 20100301
  19. TOCILIZUMAB [Suspect]
     Route: 041
     Dates: start: 20081211, end: 20081211
  20. TOCILIZUMAB [Suspect]
     Route: 041
     Dates: start: 20090106, end: 20090106
  21. TOCILIZUMAB [Suspect]
     Route: 041
     Dates: start: 20090205, end: 20090205
  22. PREDNISOLONE [Suspect]
     Route: 048
  23. PREDNISOLONE [Concomitant]
     Route: 048
     Dates: start: 20100301
  24. TOCILIZUMAB [Suspect]
     Route: 041
     Dates: start: 20081016, end: 20081016
  25. TOCILIZUMAB [Suspect]
     Route: 041
     Dates: start: 20100331, end: 20100331
  26. PREDNISOLONE [Concomitant]
     Route: 048
     Dates: start: 20090303
  27. PREDNISOLONE [Concomitant]
     Route: 048
     Dates: start: 20090101, end: 20090701
  28. TOCILIZUMAB [Suspect]
     Dosage: NOTE: DOSAGE IS UNCERTAIN.
     Route: 041
     Dates: start: 20100305, end: 20100305
  29. TOCILIZUMAB [Suspect]
     Route: 041
     Dates: start: 20100528, end: 20100528
  30. TOCILIZUMAB [Suspect]
     Route: 041
     Dates: start: 20100628, end: 20100628
  31. PREDNISOLONE [Suspect]
     Route: 048
     Dates: start: 20080802, end: 20080915
  32. PREDNISOLONE [Suspect]
     Route: 048
     Dates: start: 20090101, end: 20090701
  33. PREDNISOLONE [Suspect]
     Route: 048
     Dates: start: 20090701, end: 20100101
  34. PREDNISOLONE [Concomitant]
     Route: 048
     Dates: start: 20080916, end: 20081112
  35. LANSOPRAZOLE [Concomitant]
     Route: 048
  36. TOCILIZUMAB [Suspect]
     Route: 041
     Dates: start: 20100430, end: 20100430
  37. PREDNISOLONE [Suspect]
     Route: 048
     Dates: start: 20081113, end: 20090105
  38. TOCILIZUMAB [Suspect]
     Route: 041
     Dates: start: 20100728, end: 20100728
  39. PREDNISOLONE [Concomitant]
     Route: 048
     Dates: start: 20090106, end: 20090302

REACTIONS (4)
  - PNEUMONIA [None]
  - ARTHRALGIA [None]
  - BLOOD CREATINE PHOSPHOKINASE INCREASED [None]
  - NASOPHARYNGITIS [None]
